FAERS Safety Report 19382940 (Version 2)
Quarter: 2021Q2

REPORT INFORMATION
  Report Type: Spontaneous
  Country: US (occurrence: US)
  Receive Date: 20210607
  Receipt Date: 20210607
  Transmission Date: 20210717
  Serious: No
  Sender: FDA-Public Use
  Company Number: US-GALDERMA-US2021009568

PATIENT
  Age: 21 Year
  Sex: Female

DRUGS (1)
  1. DIFFERIN GEL [Suspect]
     Active Substance: ADAPALENE
     Indication: ACNE
     Dosage: 0.1%
     Route: 061
     Dates: start: 20210412, end: 20210419

REACTIONS (7)
  - Skin warm [Unknown]
  - Skin burning sensation [Unknown]
  - Erythema [Unknown]
  - Blister [Unknown]
  - First degree chemical burn of skin [Unknown]
  - Pain of skin [Unknown]
  - Skin hyperpigmentation [Unknown]

NARRATIVE: CASE EVENT DATE: 20210412
